FAERS Safety Report 9645462 (Version 1)
Quarter: 2013Q4

REPORT INFORMATION
  Report Type: Spontaneous
  Country: FR (occurrence: FR)
  Receive Date: 20131025
  Receipt Date: 20131025
  Transmission Date: 20140711
  Serious: Yes (Hospitalization)
  Sender: FDA-Public Use
  Company Number: FR-PFIZER INC-2013302584

PATIENT
  Age: 44 Year
  Sex: Female

DRUGS (3)
  1. LYRICA [Suspect]
     Indication: BACK PAIN
     Dosage: 50 MG, 3X/DAY/ 150 MG/DAY
     Route: 048
     Dates: start: 20120509, end: 20120514
  2. ABSTRAL [Concomitant]
     Indication: BACK PAIN
     Dosage: UNK
     Dates: start: 20120509
  3. DUROGESIC [Concomitant]
     Indication: BACK PAIN
     Dosage: UNK
     Dates: start: 20120509

REACTIONS (4)
  - Hypersensitivity [Recovered/Resolved]
  - Eyelid oedema [Recovered/Resolved]
  - Oedema [Recovered/Resolved]
  - Pyrexia [Recovered/Resolved]
